FAERS Safety Report 18275489 (Version 2)
Quarter: 2020Q4

REPORT INFORMATION
  Report Type: Spontaneous
  Country: US (occurrence: US)
  Receive Date: 20200917
  Receipt Date: 20201112
  Transmission Date: 20210113
  Serious: No
  Sender: FDA-Public Use
  Company Number: US-SA-2020SA247974

PATIENT

DRUGS (1)
  1. DUPIXENT [Suspect]
     Active Substance: DUPILUMAB
     Indication: DERMATITIS ATOPIC
     Dosage: 300 MG, QOW
     Route: 058
     Dates: start: 20200804

REACTIONS (7)
  - Pruritus [Unknown]
  - Lacrimation increased [Unknown]
  - Hypersensitivity [Unknown]
  - Scratch [Unknown]
  - Therapeutic response shortened [Unknown]
  - Terminal insomnia [Unknown]
  - Eczema [Unknown]

NARRATIVE: CASE EVENT DATE: 2020
